FAERS Safety Report 10162305 (Version 1)
Quarter: 2014Q2

REPORT INFORMATION
  Report Type: Report from Study
  Country: US (occurrence: US)
  Receive Date: 20140509
  Receipt Date: 20140509
  Transmission Date: 20141212
  Serious: Yes (Other)
  Sender: FDA-Public Use
  Company Number: US-BAYER-2014-066461

PATIENT
  Age: 73 Year
  Sex: Male

DRUGS (1)
  1. NEXAVAR [Suspect]
     Indication: PLASMA CELL MYELOMA
     Dosage: TOTAL DAILY DOSE: 200MG, DOSE REGIMEN: 4X200
     Route: 048
     Dates: start: 20131015, end: 20140502

REACTIONS (4)
  - Hepatitis [None]
  - Nausea [None]
  - Vomiting [None]
  - Off label use [None]
